FAERS Safety Report 6082799-4 (Version None)
Quarter: 2009Q1

REPORT INFORMATION
  Report Type: 
  Country: None (occurrence: None)
  Receive Date: 20090218
  Receipt Date: 20090203
  Transmission Date: 20090719
  Serious: Yes (Other)
  Sender: FDA-Public Use
  Company Number: GB-ELI_LILLY_AND_COMPANY-GB200902003886

PATIENT
  Age: 41 Year
  Sex: Female

DRUGS (4)
  1. HUMATROPE [Suspect]
     Indication: HYPOPITUITARISM
     Dosage: UNK, UNKNOWN
     Route: 065
     Dates: start: 20041201
  2. HUMATROPE [Suspect]
     Dosage: 0.6 U, DAILY (1/D)
     Dates: start: 20050201, end: 20060401
  3. HYDROCORTISON [Concomitant]
     Dosage: UNK, UNKNOWN
     Route: 065
  4. LEVOTHYROXINE SODIUM [Concomitant]
     Dosage: UNK, UNKNOWN
     Route: 065

REACTIONS (2)
  - BREAST MASS [None]
  - DIABETIC RETINOPATHY [None]
